FAERS Safety Report 18604596 (Version 1)
Quarter: 2020Q4

REPORT INFORMATION
  Report Type: Spontaneous
  Country: US (occurrence: US)
  Receive Date: 20201211
  Receipt Date: 20201211
  Transmission Date: 20210114
  Serious: No
  Sender: FDA-Public Use
  Company Number: US-GLAXOSMITHKLINE-US2020AMR241236

PATIENT
  Sex: Female

DRUGS (1)
  1. VALACYCLOVIR [Suspect]
     Active Substance: VALACYCLOVIR HYDROCHLORIDE
     Indication: CHRONIC FATIGUE SYNDROME
     Dosage: 1 G

REACTIONS (4)
  - Pyrexia [Unknown]
  - Condition aggravated [Unknown]
  - Pain [Unknown]
  - Drug ineffective for unapproved indication [Unknown]
